FAERS Safety Report 13587232 (Version 2)
Quarter: 2018Q1

REPORT INFORMATION
  Report Type: Report from Study
  Country: US (occurrence: US)
  Receive Date: 20170526
  Receipt Date: 20180202
  Transmission Date: 20180508
  Serious: Yes (Hospitalization, Other)
  Sender: FDA-Public Use
  Company Number: PHHY2016US181930

PATIENT
  Age: 38 Year
  Sex: Male
  Weight: 47.17 kg

DRUGS (16)
  1. TOBI [Suspect]
     Active Substance: TOBRAMYCIN
     Dosage: 300 OT, BID
     Route: 055
     Dates: start: 20170310, end: 20170410
  2. AZITHROMYCIN ANHYDROUS. [Concomitant]
     Active Substance: AZITHROMYCIN ANHYDROUS
     Indication: CYSTIC FIBROSIS
     Dosage: 250 MG, QD
     Route: 048
     Dates: start: 2014
  3. TOBI [Suspect]
     Active Substance: TOBRAMYCIN
     Indication: PSEUDOMONAS INFECTION
     Dosage: 300 MG, BID
     Route: 055
     Dates: start: 20151202, end: 20151230
  4. TOBI [Suspect]
     Active Substance: TOBRAMYCIN
     Dosage: 300 MG, BID
     Route: 055
     Dates: start: 20160926, end: 20161021
  5. TOBI [Suspect]
     Active Substance: TOBRAMYCIN
     Dosage: 300 MG, BID
     Route: 055
     Dates: start: 20161030, end: 20161127
  6. COLISTIN [Suspect]
     Active Substance: COLISTIN
     Dosage: 150 OT, BID
     Route: 065
     Dates: start: 20170926, end: 20171024
  7. PULMOZYME [Concomitant]
     Active Substance: DORNASE ALFA
     Indication: CYSTIC FIBROSIS
     Dosage: 2.5 MG, QD
     Route: 055
     Dates: start: 2011
  8. TOBI [Suspect]
     Active Substance: TOBRAMYCIN
     Indication: CYSTIC FIBROSIS
     Dosage: (300MG/5 ML), BID
     Route: 055
     Dates: start: 2011
  9. TOBI [Suspect]
     Active Substance: TOBRAMYCIN
     Dosage: 300 MG, BID
     Route: 055
     Dates: start: 20160411, end: 20160510
  10. CAYSTON [Suspect]
     Active Substance: AZTREONAM
     Dosage: 75 MG, TID
     Route: 055
     Dates: start: 20151231, end: 20160127
  11. COLISTIN [Suspect]
     Active Substance: COLISTIN
     Indication: PRODUCT USED FOR UNKNOWN INDICATION
     Dosage: 150 OT, BID
     Route: 065
     Dates: start: 20161128, end: 20161226
  12. CAYSTON [Suspect]
     Active Substance: AZTREONAM
     Indication: CYSTIC FIBROSIS
     Dosage: 75 MG, TID
     Route: 055
     Dates: start: 2013
  13. TOBI [Suspect]
     Active Substance: TOBRAMYCIN
     Dosage: 300 MG, BID
     Route: 055
     Dates: start: 20160128, end: 20160221
  14. TOBI [Suspect]
     Active Substance: TOBRAMYCIN
     Dosage: 300 MG, BID
     Route: 055
     Dates: start: 20161228, end: 20170126
  15. COLISTIN [Suspect]
     Active Substance: COLISTIN
     Dosage: 150 OT, BID
     Route: 065
     Dates: start: 20170203, end: 20170301
  16. COLISTIN [Suspect]
     Active Substance: COLISTIN
     Dosage: 150 OT, BID
     Route: 065
     Dates: start: 20170605, end: 20170701

REACTIONS (8)
  - Anxiety [Recovered/Resolved]
  - Cough [Unknown]
  - Dyspnoea [Recovered/Resolved]
  - Pulmonary function test decreased [Recovered/Resolved]
  - Infective pulmonary exacerbation of cystic fibrosis [Recovered/Resolved]
  - Haemoptysis [Recovered/Resolved]
  - Pseudomonas infection [Recovered/Resolved]
  - Respiratory failure [Recovered/Resolved]

NARRATIVE: CASE EVENT DATE: 20160917
